FAERS Safety Report 15740467 (Version 1)
Quarter: 2018Q4

REPORT INFORMATION
  Report Type: Spontaneous
  Country: FR (occurrence: FR)
  Receive Date: 20181219
  Receipt Date: 20181219
  Transmission Date: 20190205
  Serious: Yes (Other)
  Sender: FDA-Public Use
  Company Number: FR-PFIZER INC-2018513465

PATIENT
  Age: 76 Year
  Sex: Female

DRUGS (2)
  1. PREGABALIN. [Suspect]
     Active Substance: PREGABALIN
     Dosage: UNK
     Route: 065
     Dates: start: 2013
  2. MORPHINE [Suspect]
     Active Substance: MORPHINE
     Dosage: 40 MG, UNK (30MG+10MG)
     Route: 048
     Dates: start: 2013

REACTIONS (4)
  - Tremor [Recovered/Resolved]
  - Muscle spasms [Recovered/Resolved]
  - Drug abuse [Recovered/Resolved]
  - Withdrawal syndrome [Recovered/Resolved]

NARRATIVE: CASE EVENT DATE: 2017
